FAERS Safety Report 10410575 (Version 2)
Quarter: 2014Q3

REPORT INFORMATION
  Report Type: Spontaneous
  Country: US (occurrence: US)
  Receive Date: 20140826
  Receipt Date: 20140826
  Transmission Date: 20150326
  Serious: Yes (Hospitalization)
  Sender: FDA-Public Use
  Company Number: US-BRISTOL-MYERS SQUIBB COMPANY-20212585

PATIENT
  Age: 36 Year
  Sex: Female
  Weight: 131.52 kg

DRUGS (4)
  1. ZOLOFT [Concomitant]
     Active Substance: SERTRALINE HYDROCHLORIDE
  2. KENALOG-40 [Suspect]
     Active Substance: TRIAMCINOLONE ACETONIDE
     Indication: LIGAMENT RUPTURE
     Dosage: INJECTION
     Dates: start: 20131230
  3. LIDOCAINE. [Suspect]
     Active Substance: LIDOCAINE
  4. BUPIVACAINE [Suspect]
     Active Substance: BUPIVACAINE

REACTIONS (5)
  - Metrorrhagia [Unknown]
  - Mood swings [Unknown]
  - Hypertension [Unknown]
  - Menorrhagia [Unknown]
  - Flushing [Unknown]

NARRATIVE: CASE EVENT DATE: 201401
